FAERS Safety Report 17520416 (Version 2)
Quarter: 2020Q2

REPORT INFORMATION
  Report Type: Report from Study
  Country: US (occurrence: US)
  Receive Date: 20200310
  Receipt Date: 20200508
  Transmission Date: 20200713
  Serious: Yes (Hospitalization)
  Sender: FDA-Public Use
  Company Number: US-EISAI MEDICAL RESEARCH-EC-2020-069391

PATIENT
  Age: 58 Year
  Sex: Female
  Weight: 67.5 kg

DRUGS (11)
  1. LENVIMA [Suspect]
     Active Substance: LENVATINIB
     Indication: UTERINE CANCER
     Route: 048
     Dates: start: 20200129, end: 2020
  2. FIBER [Concomitant]
     Active Substance: PSYLLIUM HUSK
  3. VITAMIN D3 [Concomitant]
     Active Substance: CHOLECALCIFEROL
  4. PROBIOTIC AND ACIDOPHILUS [Concomitant]
  5. FISH OIL [Concomitant]
     Active Substance: FISH OIL
  6. LENVIMA [Suspect]
     Active Substance: LENVATINIB
     Route: 048
     Dates: start: 2020
  7. KEYTRUDA [Concomitant]
     Active Substance: PEMBROLIZUMAB
  8. VITAMIN C [Concomitant]
     Active Substance: ASCORBIC ACID
  9. LISINOPRIL. [Concomitant]
     Active Substance: LISINOPRIL
  10. MULTIVITAMINS [Concomitant]
     Active Substance: VITAMINS
  11. VITAMIN B [Concomitant]
     Active Substance: VITAMIN B

REACTIONS (21)
  - Headache [Unknown]
  - Decreased appetite [Unknown]
  - Asthenia [Unknown]
  - Blood urine present [Recovered/Resolved]
  - Abdominal pain [Recovered/Resolved]
  - Dysphonia [Unknown]
  - Epistaxis [Unknown]
  - Fatigue [Unknown]
  - Urinary tract infection [Unknown]
  - Faeces soft [Unknown]
  - Haematochezia [Unknown]
  - Blood thyroid stimulating hormone increased [Unknown]
  - Diarrhoea [Unknown]
  - Weight decreased [Unknown]
  - Nasal discomfort [Unknown]
  - Nasal dryness [Unknown]
  - Hypertension [Unknown]
  - Vaginal haemorrhage [Unknown]
  - Pain in extremity [Unknown]
  - Back pain [Unknown]
  - Toothache [Unknown]

NARRATIVE: CASE EVENT DATE: 2020
